FAERS Safety Report 24268148 (Version 1)
Quarter: 2024Q3

REPORT INFORMATION
  Report Type: Spontaneous
  Country: US (occurrence: None)
  Receive Date: 20240829
  Receipt Date: 20240829
  Transmission Date: 20241016
  Serious: No
  Sender: Public
  Company Number: None

PATIENT
  Sex: Male

DRUGS (1)
  1. LENALIDOMIDE [Suspect]
     Active Substance: LENALIDOMIDE
     Indication: Plasma cell myeloma
     Dosage: FREQUENCY : AS DIRECTED;?
     Route: 048
     Dates: start: 20240810

REACTIONS (7)
  - Lip swelling [None]
  - Lip pruritus [None]
  - Swelling face [None]
  - Pruritus [None]
  - Hypoaesthesia oral [None]
  - Paraesthesia oral [None]
  - Therapy interrupted [None]
